FAERS Safety Report 12012298 (Version 1)
Quarter: 2016Q1

REPORT INFORMATION
  Report Type: Spontaneous
  Country: FR (occurrence: FR)
  Receive Date: 20160205
  Receipt Date: 20160205
  Transmission Date: 20160526
  Serious: Yes (Hospitalization)
  Sender: FDA-Public Use
  Company Number: FR-SA-2016SA018940

PATIENT
  Age: 73 Year
  Sex: Male

DRUGS (9)
  1. LASILIX [Suspect]
     Active Substance: FUROSEMIDE
     Route: 048
  2. BISOPROLOL HEMIFUMARATE [Concomitant]
     Active Substance: BISOPROLOL FUMARATE
  3. LASILIX [Suspect]
     Active Substance: FUROSEMIDE
     Route: 048
     Dates: end: 201512
  4. ENTRESTO [Suspect]
     Active Substance: SACUBITRIL\VALSARTAN
     Indication: CARDIAC FAILURE
     Route: 048
     Dates: start: 20151119, end: 201512
  5. CORDARONE [Concomitant]
     Active Substance: AMIODARONE HYDROCHLORIDE
  6. ALDACTONE [Suspect]
     Active Substance: SPIRONOLACTONE
     Route: 048
     Dates: start: 20151119, end: 201512
  7. DIFFU  K [Concomitant]
     Active Substance: POTASSIUM CHLORIDE
  8. PREVISCAN [Concomitant]
     Active Substance: FLUINDIONE
  9. XATRAL [Concomitant]
     Active Substance: ALFUZOSIN

REACTIONS (1)
  - Acute kidney injury [Recovered/Resolved]

NARRATIVE: CASE EVENT DATE: 20151216
